FAERS Safety Report 7179624-7 (Version None)
Quarter: 2010Q4

REPORT INFORMATION
  Report Type: 
  Country: None (occurrence: None)
  Receive Date: 20101221
  Receipt Date: 20101209
  Transmission Date: 20110411
  Serious: Yes (Other)
  Sender: FDA-Public Use
  Company Number: US-SANOFI-AVENTIS-2010SA075399

PATIENT
  Age: 69 Year
  Sex: Male

DRUGS (2)
  1. LANTUS [Suspect]
     Indication: TYPE 2 DIABETES MELLITUS
     Dosage: DOSE:54 UNIT(S)
     Route: 058
  2. OPTICLICK [Suspect]

REACTIONS (4)
  - CATARACT [None]
  - DEAFNESS [None]
  - HYPERGLYCAEMIA [None]
  - VISUAL IMPAIRMENT [None]
